FAERS Safety Report 12214020 (Version 1)
Quarter: 2016Q1

REPORT INFORMATION
  Report Type: Other
  Country: US (occurrence: US)
  Receive Date: 20160328
  Receipt Date: 20160328
  Transmission Date: 20160526
  Serious: No
  Sender: FDA-Public Use
  Company Number: US-DEP_02624_2015

PATIENT
  Sex: Female

DRUGS (3)
  1. GRALISE [Suspect]
     Active Substance: GABAPENTIN
     Indication: HYPOAESTHESIA
     Dosage: SAMPLE PACK, 1800 MG AT NIGHT AND ONE 300 MG DURING THE DAY
     Route: 048
     Dates: start: 201503
  2. GRALISE [Suspect]
     Active Substance: GABAPENTIN
     Indication: PAIN IN EXTREMITY
     Dosage: SAMPLE PACK, 1800 MG AT NIGHT AND ONE 300 MG DURING THE DAY
     Route: 048
     Dates: start: 201503
  3. GRALISE [Suspect]
     Active Substance: GABAPENTIN
     Indication: OFF LABEL USE
     Dosage: SAMPLE PACK, 1800 MG AT NIGHT AND ONE 300 MG DURING THE DAY
     Route: 048
     Dates: start: 201503

REACTIONS (2)
  - Paraesthesia [Unknown]
  - Inappropriate schedule of drug administration [Not Recovered/Not Resolved]

NARRATIVE: CASE EVENT DATE: 201503
